FAERS Safety Report 12639398 (Version 1)
Quarter: 2016Q3

REPORT INFORMATION
  Report Type: Spontaneous
  Country: US (occurrence: None)
  Receive Date: 20160809
  Receipt Date: 20160809
  Transmission Date: 20161109
  Serious: Yes (Other)
  Sender: FDA-Public Use
  Company Number: None

PATIENT
  Age: 65 Year
  Sex: Female
  Weight: 113.4 kg

DRUGS (11)
  1. SYNTHROID [Concomitant]
     Active Substance: LEVOTHYROXINE SODIUM
  2. HUMIRA [Concomitant]
     Active Substance: ADALIMUMAB
  3. AMLODIPINE [Concomitant]
     Active Substance: AMLODIPINE BESYLATE
  4. METHOTREXATE. [Concomitant]
     Active Substance: METHOTREXATE
  5. ETODOLAC. [Concomitant]
     Active Substance: ETODOLAC
  6. HUMIRA [Suspect]
     Active Substance: ADALIMUMAB
     Indication: RHEUMATOID ARTHRITIS
     Dosage: 1 INJECTION(S) GIVEN INTO/UNDER THE SKIN
     Dates: start: 20160115, end: 20160806
  7. VITAMIN D3 [Concomitant]
     Active Substance: CHOLECALCIFEROL
  8. METOPROLOL. [Concomitant]
     Active Substance: METOPROLOL
  9. IBERSARTEN [Concomitant]
  10. FOLIC ACID. [Concomitant]
     Active Substance: FOLIC ACID
  11. MULTIPLE VITAMIN [Concomitant]
     Active Substance: VITAMINS

REACTIONS (6)
  - Injection site erythema [None]
  - Injection site vesicles [None]
  - Pruritus [None]
  - Blister [None]
  - Paraesthesia [None]
  - Injection site swelling [None]

NARRATIVE: CASE EVENT DATE: 20160806
